FAERS Safety Report 17563902 (Version 1)
Quarter: 2020Q1

REPORT INFORMATION
  Report Type: Spontaneous
  Country: US (occurrence: US)
  Receive Date: 20200320
  Receipt Date: 20200320
  Transmission Date: 20200409
  Serious: No
  Sender: FDA-Public Use
  Company Number: US-BION-007988

PATIENT
  Sex: Female

DRUGS (1)
  1. BENZONATATE UNKNOWN PRODUCT [Suspect]
     Active Substance: BENZONATATE
     Indication: PRODUCT USED FOR UNKNOWN INDICATION
     Dosage: STRENGTH: 200 MG

REACTIONS (6)
  - Product taste abnormal [Unknown]
  - Condition aggravated [Unknown]
  - Hypoaesthesia oral [Unknown]
  - Cough [Unknown]
  - Therapeutic product effect incomplete [Not Recovered/Not Resolved]
  - Wrong technique in product usage process [Not Recovered/Not Resolved]
